FAERS Safety Report 21053880 (Version 1)
Quarter: 2022Q3

REPORT INFORMATION
  Report Type: Spontaneous
  Country: US (occurrence: None)
  Receive Date: 20220707
  Receipt Date: 20220707
  Transmission Date: 20221026
  Serious: Yes (unspecified)
  Sender: FDA-Public Use
  Company Number: None

PATIENT
  Age: 33 Year
  Sex: Male

DRUGS (1)
  1. TETRAHYDROCANNABINOL UNSPECIFIED\HERBALS [Suspect]
     Active Substance: HERBALS\TETRAHYDROCANNABINOL UNSPECIFIED

REACTIONS (7)
  - Overdose [None]
  - Hyperhidrosis [None]
  - Hallucination, visual [None]
  - Incoherent [None]
  - Pallor [None]
  - Vomiting [None]
  - Mental impairment [None]

NARRATIVE: CASE EVENT DATE: 20220526
